FAERS Safety Report 9813476 (Version 2)
Quarter: 2014Q1

REPORT INFORMATION
  Report Type: Spontaneous
  Country: US (occurrence: US)
  Receive Date: 20140113
  Receipt Date: 20140120
  Transmission Date: 20141002
  Serious: Yes (Hospitalization)
  Sender: FDA-Public Use
  Company Number: US-ELI_LILLY_AND_COMPANY-US201401001804

PATIENT
  Sex: Female

DRUGS (2)
  1. FORTEO [Suspect]
     Indication: OSTEOPOROSIS
     Dosage: UNK, QD
     Route: 065
     Dates: start: 201207
  2. FORTEO [Suspect]
     Indication: SPINAL FRACTURE
     Dosage: UNK
     Route: 065
     Dates: start: 201207

REACTIONS (3)
  - Sciatica [Unknown]
  - Injection site pain [Unknown]
  - Drug dose omission [Unknown]
